FAERS Safety Report 10168730 (Version 1)
Quarter: 2014Q2

REPORT INFORMATION
  Report Type: Spontaneous
  Country: US (occurrence: None)
  Receive Date: 20140509
  Receipt Date: 20140509
  Transmission Date: 20141212
  Serious: Yes (Hospitalization)
  Sender: FDA-Public Use
  Company Number: VAL_03111_2014

PATIENT
  Age: 67 Year
  Sex: Male

DRUGS (2)
  1. METOPROLOL [Suspect]
     Indication: ARRHYTHMIA
     Dosage: (DF)?
  2. AMIODARONE [Suspect]
     Indication: ARRHYTHMIA
     Dosage: (DF)

REACTIONS (3)
  - Ventricular extrasystoles [None]
  - Ventricular tachycardia [None]
  - Nightmare [None]
